FAERS Safety Report 8576040-8 (Version None)
Quarter: 2012Q3

REPORT INFORMATION
  Report Type: 
  Country: None (occurrence: None)
  Receive Date: 20120807
  Receipt Date: 20120302
  Transmission Date: 20120928
  Serious: Yes (Hospitalization, Other)
  Sender: FDA-Public Use
  Company Number: DE-CELGENEUS-062-20785-12061207

PATIENT
  Age: 84 Year
  Sex: Male
  Weight: 71 kg

DRUGS (4)
  1. MELPHALAN HYDROCHLORIDE [Concomitant]
     Indication: MULTIPLE MYELOMA
     Dosage: .25 MILLIGRAM/KILOGRAM
     Route: 048
     Dates: start: 20110718, end: 20111016
  2. THALIDOMIDE [Suspect]
     Indication: MULTIPLE MYELOMA
     Dosage: 200 MILLIGRAM
     Route: 048
     Dates: start: 20110718
  3. THALIDOMIDE [Suspect]
     Dosage: 100 MILLIGRAM
     Route: 048
     Dates: start: 20110905, end: 20111016
  4. PREDNISONE TAB [Concomitant]
     Indication: MULTIPLE MYELOMA
     Dosage: 2 MILLIGRAM/KILOGRAM
     Route: 048
     Dates: start: 20110718, end: 20111016

REACTIONS (14)
  - WHITE BLOOD CELL DISORDER [None]
  - FATIGUE [None]
  - BACK PAIN [None]
  - VERTIGO [None]
  - DECUBITUS ULCER [None]
  - ABDOMINAL PAIN UPPER [None]
  - GENERAL PHYSICAL HEALTH DETERIORATION [None]
  - GRANULOCYTES ABNORMAL [None]
  - NAUSEA [None]
  - PLATELET DISORDER [None]
  - CARDIOVASCULAR DISORDER [None]
  - HAEMOGLOBIN DECREASED [None]
  - CONSTIPATION [None]
  - OEDEMA PERIPHERAL [None]
